FAERS Safety Report 5104809-0 (Version None)
Quarter: 2006Q3

REPORT INFORMATION
  Report Type: 
  Country: None (occurrence: None)
  Receive Date: 20060914
  Receipt Date: 20060905
  Transmission Date: 20061208
  Serious: Yes (Death, Hospitalization)
  Sender: FDA-Public Use
  Company Number: US-JNJFOC-20060902509

PATIENT
  Age: 49 Year
  Sex: Male

DRUGS (2)
  1. IBUPROFEN [Suspect]
     Indication: SUICIDE ATTEMPT
     Route: 048
  2. VALPROIC ACID [Suspect]
     Indication: SUICIDE ATTEMPT
     Route: 048

REACTIONS (7)
  - AMMONIA INCREASED [None]
  - BLOOD PH INCREASED [None]
  - BLOOD PRESSURE DECREASED [None]
  - COMPLETED SUICIDE [None]
  - DIALYSIS [None]
  - MULTIPLE DRUG OVERDOSE INTENTIONAL [None]
  - UPPER GASTROINTESTINAL HAEMORRHAGE [None]
